FAERS Safety Report 18910659 (Version 1)
Quarter: 2021Q1

REPORT INFORMATION
  Report Type: Spontaneous
  Country: US (occurrence: US)
  Receive Date: 20210218
  Receipt Date: 20210218
  Transmission Date: 20210420
  Serious: Yes (Life-Threatening, Hospitalization)
  Sender: FDA-Public Use
  Company Number: US-MYLANLABS-2021M1009680

PATIENT
  Age: 73 Year
  Sex: Male

DRUGS (10)
  1. CIMETIDINE [Concomitant]
     Active Substance: CIMETIDINE
     Indication: PRODUCT USED FOR UNKNOWN INDICATION
     Dosage: UNK
     Route: 065
  2. LEVAMISOLE [Concomitant]
     Active Substance: LEVAMISOLE
     Indication: PRODUCT USED FOR UNKNOWN INDICATION
     Dosage: UNK
     Route: 065
  3. PIROXICAM. [Suspect]
     Active Substance: PIROXICAM
     Indication: ARTHRALGIA
     Dosage: UNK
     Route: 065
  4. ATROPINE. [Concomitant]
     Active Substance: ATROPINE
     Indication: PRODUCT USED FOR UNKNOWN INDICATION
     Dosage: UNK
     Route: 065
  5. BERBERINE [Concomitant]
     Active Substance: BERBERINE
     Indication: PRODUCT USED FOR UNKNOWN INDICATION
     Dosage: UNK
     Route: 065
  6. INDOMETACIN [Suspect]
     Active Substance: INDOMETHACIN
     Indication: ARTHRALGIA
     Dosage: UNK
     Route: 065
  7. BOLDINE [Concomitant]
     Active Substance: BOLDINE
     Indication: PRODUCT USED FOR UNKNOWN INDICATION
     Dosage: UNK
     Route: 065
  8. TETRACYCLINE [Concomitant]
     Active Substance: TETRACYCLINE
     Indication: PRODUCT USED FOR UNKNOWN INDICATION
     Dosage: UNK
     Route: 065
  9. DICLOFENAC [Suspect]
     Active Substance: DICLOFENAC
     Indication: ARTHRALGIA
     Dosage: UNK
     Route: 065
  10. CHLORTETRACYCLINE [Concomitant]
     Active Substance: CHLORTETRACYCLINE
     Indication: PRODUCT USED FOR UNKNOWN INDICATION
     Dosage: UNK
     Route: 065

REACTIONS (8)
  - Gastrointestinal haemorrhage [Recovered/Resolved]
  - Abdominal compartment syndrome [Recovered/Resolved]
  - Arterial haemorrhage [Recovered/Resolved]
  - Duodenal perforation [Recovered/Resolved]
  - Renal ischaemia [Recovering/Resolving]
  - Duodenal ulcer haemorrhage [Recovered/Resolved]
  - Coagulopathy [Recovered/Resolved]
  - Adulterated product [Unknown]
